FAERS Safety Report 10512275 (Version 5)
Quarter: 2015Q1

REPORT INFORMATION
  Report Type: Spontaneous
  Country: JP (occurrence: JP)
  Receive Date: 20141010
  Receipt Date: 20150113
  Transmission Date: 20150720
  Serious: Yes (Hospitalization)
  Sender: FDA-Public Use
  Company Number: JP-009507513-1410JPN005450

PATIENT
  Age: 82 Year
  Sex: Male

DRUGS (10)
  1. NIFEDIPINE. [Concomitant]
     Active Substance: NIFEDIPINE
     Dosage: 20 MG, UNKNOWN FREQUENCY
  2. TAMSULOSIN HYDROCHLORIDE. [Concomitant]
     Active Substance: TAMSULOSIN HYDROCHLORIDE
     Dosage: 0.2 MG, UNKNOWN FREQUENCY
  3. JANUVIA [Suspect]
     Active Substance: SITAGLIPTIN PHOSPHATE
     Indication: TYPE 2 DIABETES MELLITUS
     Dosage: 50 MG, QD
     Route: 048
  4. ASPIRIN. [Concomitant]
     Active Substance: ASPIRIN
     Dosage: 100 MG, UNKNOWN FREQUENCY
     Route: 048
  5. CANDESARTAN [Concomitant]
     Active Substance: CANDESARTAN
     Dosage: 8 MG,UNKNOWN FREQUENCY
  6. NICORANDIL [Concomitant]
     Active Substance: NICORANDIL
  7. YOKU-KAN-SAN [Concomitant]
     Dosage: 5 MG, UNKNOWN FREQUENCY
  8. DONEPEZIL HYDROCHLORIDE. [Suspect]
     Active Substance: DONEPEZIL HYDROCHLORIDE
     Indication: DEMENTIA ALZHEIMER^S TYPE
     Dosage: 10 MG, QD
     Route: 048
  9. FUROSEMIDE. [Concomitant]
     Active Substance: FUROSEMIDE
     Dosage: 20 MG, UNKNOWN FREQUENCY
     Route: 048
  10. TAMSULOSIN HYDROCHLORIDE. [Concomitant]
     Active Substance: TAMSULOSIN HYDROCHLORIDE
     Dosage: 10 MG, UNKNOWN FREQUENCY

REACTIONS (6)
  - Prinzmetal angina [Unknown]
  - Chest discomfort [Unknown]
  - Drug level increased [Recovering/Resolving]
  - Long QT syndrome [Recovering/Resolving]
  - Bundle branch block right [Unknown]
  - Renal impairment [Recovering/Resolving]
